FAERS Safety Report 5929418-2 (Version None)
Quarter: 2008Q4

REPORT INFORMATION
  Report Type: 
  Country: None (occurrence: None)
  Receive Date: 20081024
  Receipt Date: 20081014
  Transmission Date: 20090506
  Serious: Yes (Death, Hospitalization)
  Sender: FDA-Public Use
  Company Number: AT-ROCHE-576782

PATIENT
  Sex: Male

DRUGS (16)
  1. MYCOPHENOLATE MOFETIL [Suspect]
     Indication: LIVER TRANSPLANT
     Route: 048
     Dates: start: 20080703
  2. BLINDED BASILIXIMAB [Suspect]
     Indication: LIVER TRANSPLANT
     Route: 042
     Dates: start: 20080703
  3. BELATACEPT [Suspect]
     Indication: LIVER TRANSPLANT
     Dosage: DOSING REGIMEN BLINDED.
     Route: 042
     Dates: start: 20080703, end: 20080730
  4. DIPIDOLOR [Concomitant]
  5. NOVALGIN [Concomitant]
  6. PREDNISOLONE [Concomitant]
  7. VALCYTE [Concomitant]
  8. PANTOPRAZOLE SODIUM [Concomitant]
  9. URSO FALK [Concomitant]
  10. DILATREND [Concomitant]
  11. SEROQUEL [Concomitant]
  12. LASILACTONE [Concomitant]
  13. PERFALGAN [Concomitant]
  14. BACTRIM DS [Concomitant]
  15. VOLTAREN [Concomitant]
  16. LOVENOX [Concomitant]

REACTIONS (3)
  - BILE DUCT NECROSIS [None]
  - ESCHERICHIA SEPSIS [None]
  - SOFT TISSUE NECROSIS [None]
